FAERS Safety Report 9481750 (Version 1)
Quarter: 2013Q3

REPORT INFORMATION
  Report Type: Spontaneous
  Country: US (occurrence: US)
  Receive Date: 20130828
  Receipt Date: 20130828
  Transmission Date: 20140515
  Serious: Yes (Hospitalization, Other)
  Sender: FDA-Public Use
  Company Number: US-AMGEN-KDL222478

PATIENT
  Age: 62 Year
  Sex: Female

DRUGS (2)
  1. ENBREL [Suspect]
     Indication: PSORIASIS
     Dosage: 50 MG, QWK
     Route: 058
     Dates: start: 20060801
  2. METHOTREXATE [Concomitant]
     Dosage: 20 MG, QWK
     Dates: start: 2005

REACTIONS (2)
  - Pneumonia [Unknown]
  - Anaemia [Not Recovered/Not Resolved]
